FAERS Safety Report 5540391-1 (Version None)
Quarter: 2007Q4

REPORT INFORMATION
  Report Type: 
  Country: None (occurrence: None)
  Receive Date: 20071129
  Receipt Date: 20070427
  Transmission Date: 20080405
  Serious: Yes (Other)
  Sender: FDA-Public Use
  Company Number: US200704006428

PATIENT
  Age: 47 Year
  Sex: Male

DRUGS (1)
  1. ZYPREXA [Suspect]
     Indication: SCHIZOPHRENIA
     Dosage: 30 MG, DAILY (1/D), ORAL
     Route: 048
     Dates: start: 20050101

REACTIONS (6)
  - BRADYCARDIA [None]
  - FALL [None]
  - FLUID INTAKE REDUCED [None]
  - HYPOTENSION [None]
  - OVERDOSE [None]
  - SYNCOPE [None]
